FAERS Safety Report 23111401 (Version 3)
Quarter: 2023Q4

REPORT INFORMATION
  Report Type: Spontaneous
  Country: US (occurrence: US)
  Receive Date: 20231026
  Receipt Date: 20231218
  Transmission Date: 20240110
  Serious: Yes (Hospitalization)
  Sender: FDA-Public Use
  Company Number: US-PFIZER INC-PV202300034606

PATIENT
  Age: 77 Year
  Sex: Female
  Weight: 72.562 kg

DRUGS (17)
  1. XELJANZ XR [Suspect]
     Active Substance: TOFACITINIB CITRATE
     Indication: Rheumatoid arthritis
     Dosage: 11 MG, DAILY
     Route: 048
  2. OMEPRAZOLE [Concomitant]
     Active Substance: OMEPRAZOLE
     Dosage: 40 MG
     Dates: start: 202008
  3. FLUTICASONE [Concomitant]
     Active Substance: FLUTICASONE
     Dosage: 50 UG
     Dates: start: 201904
  4. LEVOTHYROXINE [Concomitant]
     Active Substance: LEVOTHYROXINE
     Dosage: 75 UG
     Dates: start: 201409
  5. ANTIHISTAMINE ALLERGY RELIEF [Concomitant]
     Dosage: 10 MG
  6. BITIN [Concomitant]
     Dosage: 10000 UG
  7. CRANBERRY [Concomitant]
     Active Substance: CRANBERRY
     Dosage: 15000 MG
  8. LYSINE [Concomitant]
     Active Substance: LYSINE
     Dosage: 500 MG
  9. VITAMIN E [Concomitant]
     Active Substance: .ALPHA.-TOCOPHEROL
     Dosage: UNK
  10. CITRACAL CALCIUM PEARLS + D3 [Concomitant]
     Dosage: 125 UG
  11. PROGESTERONE [Concomitant]
     Active Substance: PROGESTERONE
     Dosage: 20 MG
  12. OCUVITE ADULT 50+ [ASCORBIC ACID;COPPER GLUCONATE;FISH OIL;TOCOPHEROL; [Concomitant]
     Dosage: UNK
  13. POTASSIUM [Concomitant]
     Active Substance: POTASSIUM
     Indication: Hypertension
     Dosage: 25 MG
     Dates: start: 2015
  14. LOSARTAN [Concomitant]
     Active Substance: LOSARTAN
     Indication: Hypertension
     Dosage: 25 MG
     Dates: start: 2015
  15. ROSUVASTATIN CALCIUM [Concomitant]
     Active Substance: ROSUVASTATIN CALCIUM
     Indication: Blood cholesterol increased
     Dosage: 5 MG
     Dates: start: 202011
  16. HYDROCODONE [Concomitant]
     Active Substance: HYDROCODONE
     Indication: Back disorder
     Dosage: 10-325 MG 3TIME PER DAY
     Dates: start: 2019
  17. TRAZODONE [Concomitant]
     Active Substance: TRAZODONE HYDROCHLORIDE
     Indication: Sleep disorder
     Dosage: AT NIGHT
     Dates: start: 201502

REACTIONS (2)
  - Urinary tract infection [Recovered/Resolved]
  - Stomatitis [Recovered/Resolved]
